FAERS Safety Report 13771920 (Version 1)
Quarter: 2017Q3

REPORT INFORMATION
  Report Type: Spontaneous
  Country: US (occurrence: US)
  Receive Date: 20170720
  Receipt Date: 20170720
  Transmission Date: 20171127
  Serious: No
  Sender: FDA-Public Use
  Company Number: US-BION-004882

PATIENT
  Age: 50 Year
  Sex: Female
  Weight: 69.39 kg

DRUGS (9)
  1. CYANOCOBALAMIN. [Concomitant]
     Active Substance: CYANOCOBALAMIN
  2. ZINC. [Concomitant]
     Active Substance: ZINC
  3. LEVOTHYROXINE. [Concomitant]
     Active Substance: LEVOTHYROXINE
  4. CALCITRIOL. [Suspect]
     Active Substance: CALCITRIOL
     Indication: PRODUCT USED FOR UNKNOWN INDICATION
     Route: 048
  5. IODINE. [Concomitant]
     Active Substance: IODINE
  6. CALCIUM/MAGNESIUM [Suspect]
     Active Substance: CALCIUM\MAGNESIUM
     Indication: PRODUCT USED FOR UNKNOWN INDICATION
     Dosage: 3X/DAY
  7. CYANOCOBALAMIN. [Concomitant]
     Active Substance: CYANOCOBALAMIN
     Route: 060
  8. ASCORBIC ACID. [Concomitant]
     Active Substance: ASCORBIC ACID
  9. FOLIC ACID. [Suspect]
     Active Substance: FOLIC ACID
     Indication: PRODUCT USED FOR UNKNOWN INDICATION
     Route: 060

REACTIONS (9)
  - Burning sensation [Unknown]
  - Decreased appetite [Unknown]
  - Malaise [Unknown]
  - Pollakiuria [Unknown]
  - Nausea [Unknown]
  - Feeling abnormal [Unknown]
  - Hypoaesthesia [Unknown]
  - Burning mouth syndrome [Unknown]
  - Thirst [Unknown]
